FAERS Safety Report 12783394 (Version 9)
Quarter: 2017Q4

REPORT INFORMATION
  Report Type: Spontaneous
  Country: US (occurrence: US)
  Receive Date: 20160927
  Receipt Date: 20171208
  Transmission Date: 20180320
  Serious: No
  Sender: FDA-Public Use
  Company Number: US-ACTELION-A-US2016-142649

PATIENT
  Age: 53 Year
  Sex: Female

DRUGS (8)
  1. CARDIZEM [Suspect]
     Active Substance: DILTIAZEM HYDROCHLORIDE
     Indication: PRODUCT USED FOR UNKNOWN INDICATION
     Dosage: UNK
     Route: 065
  2. VENTAVIS [Suspect]
     Active Substance: ILOPROST
     Indication: PULMONARY ARTERIAL HYPERTENSION
     Dosage: 5 MCG, 6-9XDAILY
     Route: 055
     Dates: start: 20110601
  3. ADEMPAS [Suspect]
     Active Substance: RIOCIGUAT
     Dosage: 2.5 MG, QD
     Route: 065
  4. LETAIRIS [Suspect]
     Active Substance: AMBRISENTAN
     Indication: PULMONARY HYPERTENSION
     Dosage: 5 MG, QD
     Route: 065
     Dates: start: 20160822
  5. VENTAVIS [Suspect]
     Active Substance: ILOPROST
     Dosage: 5 MCG, 6X DAILY
     Route: 055
     Dates: start: 20120710
  6. ADEMPAS [Suspect]
     Active Substance: RIOCIGUAT
     Indication: PRODUCT USED FOR UNKNOWN INDICATION
     Dosage: 1.5 MG, UNK
     Route: 065
     Dates: start: 20170427
  7. SIMVASTATIN. [Concomitant]
     Active Substance: SIMVASTATIN
  8. CARVEDILOL. [Concomitant]
     Active Substance: CARVEDILOL

REACTIONS (10)
  - Anxiety [Unknown]
  - Dyspnoea exertional [Not Recovered/Not Resolved]
  - Fatigue [Not Recovered/Not Resolved]
  - Nasopharyngitis [Unknown]
  - Dyspnoea [Unknown]
  - Eye allergy [Not Recovered/Not Resolved]
  - Constipation [Unknown]
  - Dizziness [Not Recovered/Not Resolved]
  - Headache [Not Recovered/Not Resolved]
  - Oedema peripheral [Not Recovered/Not Resolved]

NARRATIVE: CASE EVENT DATE: 20170427
